FAERS Safety Report 16680270 (Version 2)
Quarter: 2019Q4

REPORT INFORMATION
  Report Type: Report from Study
  Country: IT (occurrence: IT)
  Receive Date: 20190807
  Receipt Date: 20191129
  Transmission Date: 20200122
  Serious: Yes (Death, Hospitalization)
  Sender: FDA-Public Use
  Company Number: PHHY2019IT182598

PATIENT
  Age: 72 Year
  Sex: Male
  Weight: 81 kg

DRUGS (4)
  1. EVEROLIMUS. [Suspect]
     Active Substance: EVEROLIMUS
     Indication: RENAL CELL CARCINOMA
     Dosage: 5 MG, QD
     Route: 048
     Dates: start: 20190626, end: 20190708
  2. BISOPROLOL FUMARATE. [Concomitant]
     Active Substance: BISOPROLOL FUMARATE
     Indication: PRODUCT USED FOR UNKNOWN INDICATION
     Route: 065
  3. LENVATINIB [Suspect]
     Active Substance: LENVATINIB
     Indication: RENAL CELL CARCINOMA
     Dosage: 18 MG, QD
     Route: 048
     Dates: start: 20190626, end: 20190708
  4. TORVAST [Concomitant]
     Active Substance: ATORVASTATIN
     Indication: PRODUCT USED FOR UNKNOWN INDICATION
     Dosage: UNK
     Route: 065

REACTIONS (4)
  - Shock [Recovered/Resolved]
  - Nausea [Unknown]
  - Diarrhoea [Unknown]
  - Sudden death [Fatal]

NARRATIVE: CASE EVENT DATE: 20190706
